FAERS Safety Report 6151982-1 (Version None)
Quarter: 2009Q2

REPORT INFORMATION
  Report Type: 
  Country: None (occurrence: None)
  Receive Date: 20090409
  Receipt Date: 20090409
  Transmission Date: 20091009
  Serious: Yes (Death)
  Sender: FDA-Public Use
  Company Number: None

PATIENT
  Sex: Female
  Weight: 112.4921 kg

DRUGS (8)
  1. HUMIRA [Suspect]
     Indication: PSORIASIS
     Dates: start: 20080424, end: 20081201
  2. HUMIRA [Suspect]
     Indication: PSORIATIC ARTHROPATHY
     Dates: start: 20080424, end: 20081201
  3. LANTUS [Concomitant]
  4. HUMALOG [Concomitant]
  5. SENNA [Concomitant]
  6. METHADONE HCL [Concomitant]
  7. SEROQUEL [Concomitant]
  8. INFLUENZA VACCINE [Concomitant]

REACTIONS (1)
  - MYOCARDIAL INFARCTION [None]
